FAERS Safety Report 9137858 (Version 1)
Quarter: 2013Q1

REPORT INFORMATION
  Report Type: Spontaneous
  Country: US (occurrence: US)
  Receive Date: 20130304
  Receipt Date: 20130304
  Transmission Date: 20140127
  Serious: No
  Sender: FDA-Public Use
  Company Number: US-B.I. PHARMACEUTICALS,INC./RIDGEFIELD-2013-BI-05354BP

PATIENT
  Sex: Female

DRUGS (3)
  1. MICARDIS [Suspect]
     Indication: BLOOD PRESSURE ABNORMAL
     Dosage: 20 MG
     Route: 048
     Dates: start: 201212
  2. DIFFERENT COMBINATIONS OF ESTROGEN [Concomitant]
     Indication: BLOOD OESTROGEN DECREASED
  3. HYDROCHLOROTHIAZIDE [Concomitant]
     Indication: HYPERTENSION
     Dosage: 12.5 MG
     Route: 048
     Dates: start: 2011

REACTIONS (1)
  - Underdose [Not Recovered/Not Resolved]
